FAERS Safety Report 5637797-9 (Version None)
Quarter: 2008Q1

REPORT INFORMATION
  Report Type: 
  Country: None (occurrence: None)
  Receive Date: 20080221
  Receipt Date: 20080213
  Transmission Date: 20080703
  Serious: Yes (Other)
  Sender: FDA-Public Use
  Company Number: 2008003944

PATIENT
  Age: 29 Year
  Sex: Female
  Weight: 45.3597 kg

DRUGS (1)
  1. VISINE EYE DROPS [Suspect]
     Indication: OCULAR HYPERAEMIA
     Dosage: 1 DROP ONCE DAILY (1 IN 1 D), OPHTHALMIC
     Route: 047
     Dates: start: 19960101, end: 20080209

REACTIONS (1)
  - RETINAL TEAR [None]
